FAERS Safety Report 11156728 (Version 2)
Quarter: 2015Q3

REPORT INFORMATION
  Report Type: Spontaneous
  Country: JP (occurrence: JP)
  Receive Date: 20150602
  Receipt Date: 20150825
  Transmission Date: 20151125
  Serious: Yes (Other)
  Sender: FDA-Public Use
  Company Number: JP-GLAXOSMITHKLINE INC.-JP2015JPN072708

PATIENT

DRUGS (1)
  1. ARRANON [Suspect]
     Active Substance: NELARABINE
     Dosage: 250 MG, UNK
     Route: 042

REACTIONS (2)
  - Leukoencephalopathy [Unknown]
  - Disease progression [Unknown]

NARRATIVE: CASE EVENT DATE: 201410
